FAERS Safety Report 4791661-6 (Version None)
Quarter: 2005Q4

REPORT INFORMATION
  Report Type: 
  Country: None (occurrence: None)
  Receive Date: 20051007
  Receipt Date: 20050929
  Transmission Date: 20060501
  Serious: Yes (Death, Hospitalization)
  Sender: FDA-Public Use
  Company Number: US-KINGPHARMUSA00001-K200501284

PATIENT
  Age: 12 Month
  Sex: Male

DRUGS (1)
  1. ENDAGEN HD [Suspect]
     Dosage: UP TO 20 ML, SINGLE
     Route: 048

REACTIONS (7)
  - ACCIDENTAL OVERDOSE [None]
  - CARDIO-RESPIRATORY ARREST [None]
  - DIABETES INSIPIDUS [None]
  - HYPOTENSION [None]
  - MYDRIASIS [None]
  - PULSE ABNORMAL [None]
  - UNRESPONSIVE TO PAIN STIMULI [None]
